FAERS Safety Report 9098693 (Version 2)
Quarter: 2013Q1

REPORT INFORMATION
  Report Type: Spontaneous
  Country: JP (occurrence: JP)
  Receive Date: 20130213
  Receipt Date: 20130305
  Transmission Date: 20140127
  Serious: Yes (Life-Threatening, Hospitalization, Other)
  Sender: FDA-Public Use
  Company Number: JP-PFIZER INC-2013028741

PATIENT
  Age: 40 Year
  Sex: Male
  Weight: 80 kg

DRUGS (7)
  1. CHAMPIX [Suspect]
     Indication: SMOKING CESSATION THERAPY
     Dosage: 0.5 MG, 1X/DAY
     Route: 048
     Dates: start: 20120924, end: 20120926
  2. CHAMPIX [Suspect]
     Dosage: 1 MG, 2X/DAY
     Route: 048
     Dates: start: 20120927, end: 20120930
  3. CHAMPIX [Suspect]
     Dosage: 2 MG, 2X/DAY
     Route: 048
     Dates: start: 20121001, end: 20130119
  4. WARFARIN [Suspect]
     Indication: INTRACARDIAC THROMBUS
     Dosage: OPTIMAL DOSE, 1X/DAY
     Route: 048
     Dates: start: 20080215, end: 20120927
  5. FEBURIC [Concomitant]
     Indication: HYPERURICAEMIA
     Dosage: 10 MG, 1X/DAY
     Route: 048
     Dates: start: 20121214
  6. CRESTOR [Concomitant]
     Indication: ISCHAEMIC HEART DISEASE PROPHYLAXIS
     Dosage: UNK
     Route: 048
  7. BAYASPIRIN [Concomitant]
     Indication: ACUTE MYOCARDIAL INFARCTION
     Dosage: 100 MG, 1X/DAY
     Route: 048
     Dates: start: 20070810

REACTIONS (2)
  - Acute myocardial infarction [Recovering/Resolving]
  - Cerebral infarction [Recovering/Resolving]
